FAERS Safety Report 22954391 (Version 2)
Quarter: 2023Q4

REPORT INFORMATION
  Report Type: Report from Study
  Country: US (occurrence: US)
  Receive Date: 20230918
  Receipt Date: 20231123
  Transmission Date: 20240110
  Serious: Yes (Hospitalization)
  Sender: FDA-Public Use
  Company Number: US-Accord-379148

PATIENT
  Sex: Male
  Weight: 63.5 kg

DRUGS (1)
  1. CLOZAPINE [Suspect]
     Active Substance: CLOZAPINE
     Indication: Schizophrenia
     Dosage: 300MG, DAILY AT BEDTIME
     Route: 048

REACTIONS (1)
  - Schizophrenia [Unknown]
